FAERS Safety Report 5622145-0 (Version None)
Quarter: 2008Q1

REPORT INFORMATION
  Report Type: 
  Country: None (occurrence: None)
  Receive Date: 20080211
  Receipt Date: 20080128
  Transmission Date: 20080703
  Serious: Yes (Hospitalization, Other)
  Sender: FDA-Public Use
  Company Number: FR-ROCHE-544767

PATIENT
  Age: 45 Year
  Sex: Male

DRUGS (5)
  1. FUZEON [Suspect]
     Indication: DRUG USE FOR UNKNOWN INDICATION
     Dosage: FORM: INJECTABLE SOLUTION.
     Route: 058
     Dates: start: 20071022, end: 20071213
  2. PROGRAF [Suspect]
     Indication: DRUG USE FOR UNKNOWN INDICATION
     Route: 048
     Dates: start: 20071001
  3. NORVIR [Suspect]
     Indication: DRUG USE FOR UNKNOWN INDICATION
     Route: 065
     Dates: start: 20071022, end: 20071213
  4. PREZISTA [Suspect]
     Indication: DRUG USE FOR UNKNOWN INDICATION
     Route: 048
     Dates: start: 20071022, end: 20071213
  5. ISENTRESS [Suspect]
     Indication: DRUG USE FOR UNKNOWN INDICATION
     Route: 048
     Dates: start: 20071022, end: 20071213

REACTIONS (5)
  - CD4 LYMPHOCYTES DECREASED [None]
  - CHOLESTASIS [None]
  - HEPATITIS C [None]
  - MYELOCYTOSIS [None]
  - RENAL FAILURE [None]
